FAERS Safety Report 8910544 (Version 3)
Quarter: 2013Q1

REPORT INFORMATION
  Report Type: Report from Study
  Country: JP (occurrence: JP)
  Receive Date: 20121109
  Receipt Date: 20130212
  Transmission Date: 20140127
  Serious: Yes (Hospitalization, Other)
  Sender: FDA-Public Use
  Company Number: JP-MERCK-1207JPN000737

PATIENT
  Age: 68 Year
  Sex: Female
  Weight: 50 kg

DRUGS (9)
  1. PEGINTRON [Suspect]
     Indication: CHRONIC HEPATITIS C
     Dosage: 1.5 MICROGRAM PER KILOGRAM, QW
     Route: 058
     Dates: start: 20120426, end: 20121009
  2. REBETOL [Interacting]
     Indication: CHRONIC HEPATITIS C
     Dosage: 400 MG, QD
     Route: 048
     Dates: start: 20120426, end: 20120718
  3. REBETOL [Interacting]
     Dosage: 200 MG, QD
     Route: 048
     Dates: start: 20120719, end: 20120725
  4. REBETOL [Interacting]
     Dosage: 200 MG, QD
     Route: 048
     Dates: start: 20120809, end: 20120814
  5. REBETOL [Interacting]
     Dosage: 400 MG, QD
     Route: 048
     Dates: start: 20120815, end: 20120830
  6. REBETOL [Interacting]
     Dosage: 500 MG/ DAY (400 MG AND 600 MG, ALTERNATELY)
     Route: 048
     Dates: start: 20120831, end: 20121011
  7. TELAVIC [Suspect]
     Indication: CHRONIC HEPATITIS C
     Dosage: 1500 MG, QD
     Route: 048
     Dates: start: 20120426, end: 20120718
  8. MAGMITT [Concomitant]
     Indication: PROPHYLAXIS
     Dosage: UNK, QD, FORMULATION: POR
     Route: 048
  9. MYSER (DIFLUPREDNATE) [Concomitant]
     Dosage: UNK, PRN
     Route: 061
     Dates: end: 20120814

REACTIONS (4)
  - Anaemia [Not Recovered/Not Resolved]
  - Decreased appetite [Recovering/Resolving]
  - Anaemia [Recovering/Resolving]
  - Decreased appetite [Recovered/Resolved]
